FAERS Safety Report 5786553-X (Version None)
Quarter: 2008Q2

REPORT INFORMATION
  Report Type: 
  Country: None (occurrence: None)
  Receive Date: 20080624
  Receipt Date: 20080527
  Transmission Date: 20081010
  Serious: No
  Sender: FDA-Public Use
  Company Number: US-BOEHRINGER INGELHEIM GMBH, GERMANY-2008-BP-08308BP

PATIENT
  Age: 33 Year
  Sex: Female

DRUGS (1)
  1. MICARDIS HCT [Suspect]
     Indication: HYPERTENSION

REACTIONS (15)
  - AMNESIA [None]
  - ANXIETY [None]
  - BACK PAIN [None]
  - CHEST PAIN [None]
  - DEPERSONALISATION [None]
  - DEPRESSION [None]
  - DIZZINESS [None]
  - DYSPEPSIA [None]
  - DYSPNOEA [None]
  - FEAR [None]
  - FRUSTRATION [None]
  - LIBIDO DECREASED [None]
  - PAINFUL RESPIRATION [None]
  - PANIC ATTACK [None]
  - THINKING ABNORMAL [None]
